FAERS Safety Report 22386463 (Version 1)
Quarter: 2023Q2

REPORT INFORMATION
  Report Type: Report from Study
  Country: BR (occurrence: BR)
  Receive Date: 20230531
  Receipt Date: 20230531
  Transmission Date: 20230721
  Serious: Yes (Other)
  Sender: FDA-Public Use
  Company Number: BR-ABBOTT-2021A-1343536

PATIENT
  Age: 15 Year
  Sex: Male
  Weight: 81 kg

DRUGS (1)
  1. DEPAKOTE [Suspect]
     Active Substance: DIVALPROEX SODIUM
     Indication: Product used for unknown indication
     Dosage: DAILY DOSE: 500MG DURING THE DAY AND 250MG AT NIGHT
     Route: 048
     Dates: start: 201502

REACTIONS (11)
  - Epilepsy [Not Recovered/Not Resolved]
  - Product use issue [Unknown]
  - Off label use [Unknown]
  - Inappropriate schedule of product administration [Unknown]
  - Headache [Not Recovered/Not Resolved]
  - Haemangioma [Not Recovered/Not Resolved]
  - Syncope [Not Recovered/Not Resolved]
  - Anxiety [Not Recovered/Not Resolved]
  - Memory impairment [Not Recovered/Not Resolved]
  - Sleep attacks [Unknown]
  - Vision blurred [Unknown]

NARRATIVE: CASE EVENT DATE: 20150226
